FAERS Safety Report 4492709-9 (Version None)
Quarter: 2004Q4

REPORT INFORMATION
  Report Type: 
  Country: None (occurrence: None)
  Receive Date: 20041102
  Receipt Date: 20041102
  Transmission Date: 20050328
  Serious: Yes (Hospitalization)
  Sender: FDA-Public Use
  Company Number: None

PATIENT
  Age: 71 Year
  Sex: Male
  Weight: 80 kg

DRUGS (2)
  1. AMIODARONE 150 MG AMERICAN PHARMACEUTICAL [Suspect]
     Indication: CARDIOVERSION
     Dosage: 150 MG 1X IV
     Route: 042
     Dates: start: 20040331, end: 20040331
  2. AMIODARONE 150 MG AMERICAN PHARMACEUTICAL [Suspect]
     Indication: ECHOCARDIOGRAM
     Dosage: 150 MG 1X IV
     Route: 042
     Dates: start: 20040331, end: 20040331

REACTIONS (7)
  - AGGRESSION [None]
  - CARDIO-RESPIRATORY ARREST [None]
  - COMA [None]
  - HAEMOPTYSIS [None]
  - INFUSION RELATED REACTION [None]
  - MUSCLE TWITCHING [None]
  - URINARY INCONTINENCE [None]
